FAERS Safety Report 7117267 (Version 4)
Quarter: 2013Q4

REPORT INFORMATION
  Report Type: Spontaneous
  Country: GB (occurrence: GB)
  Receive Date: 20090908
  Receipt Date: 20131108
  Transmission Date: 20140711
  Serious: Yes (Other)
  Sender: FDA-Public Use
  Company Number: GB-009507513-2009SP022956

PATIENT
  Age: 40 Year
  Sex: Male

DRUGS (10)
  1. MIRTAZAPINE [Suspect]
  2. ABILIFY [Suspect]
     Indication: METABOLIC SYNDROME
     Dosage: 15 MG, QAM
     Route: 048
     Dates: start: 200804
  3. ABILIFY [Suspect]
     Indication: SCHIZOAFFECTIVE DISORDER
     Dosage: UNK
     Route: 048
  4. ABILIFY [Suspect]
     Dosage: 15 MG, QAM
     Route: 048
  5. DULOXETINE HYDROCHLORIDE [Suspect]
  6. QUETIAPINE FUMARATE [Suspect]
  7. RISPERIDONE [Suspect]
  8. VALPROATE SODIUM [Suspect]
  9. LITHIUM [Concomitant]
     Dosage: 600 MG, QD
  10. EFFEXOR [Concomitant]
     Indication: DEPRESSION
     Dosage: 225 MG, QD
     Route: 048

REACTIONS (3)
  - Hypothyroidism [Not Recovered/Not Resolved]
  - Metabolic syndrome [Not Recovered/Not Resolved]
  - Liver function test abnormal [Not Recovered/Not Resolved]
